FAERS Safety Report 19587559 (Version 1)
Quarter: 2021Q3

REPORT INFORMATION
  Report Type: Spontaneous
  Country: US (occurrence: US)
  Receive Date: 20210721
  Receipt Date: 20210721
  Transmission Date: 20211014
  Serious: No
  Sender: FDA-Public Use
  Company Number: None

PATIENT
  Age: 48 Year
  Sex: Female
  Weight: 95.4 kg

DRUGS (12)
  1. TRIJARDY [Concomitant]
  2. NEUROP AWAY PM [Concomitant]
  3. WATER AWAY [Concomitant]
  4. COENZYME Q10 [Concomitant]
     Active Substance: DIETARY SUPPLEMENT\UBIDECARENONE
  5. OMEPRAZOLE. [Concomitant]
     Active Substance: OMEPRAZOLE
  6. DILITIAZEM [Concomitant]
     Active Substance: DILTIAZEM
  7. OZEMPIC [Suspect]
     Active Substance: SEMAGLUTIDE
     Indication: DIABETES MELLITUS
     Dates: start: 20210708
  8. ZYRTEC [Concomitant]
     Active Substance: CETIRIZINE HYDROCHLORIDE
  9. LOSARTAN. [Concomitant]
     Active Substance: LOSARTAN
  10. ASTORVATATIN [Concomitant]
  11. SUPER B VITAMIN COMPLEX [Concomitant]
  12. VASCEPA [Concomitant]
     Active Substance: ICOSAPENT ETHYL

REACTIONS (6)
  - Eructation [None]
  - Diarrhoea [None]
  - Fear [None]
  - Dyspepsia [None]
  - Flatulence [None]
  - Decreased appetite [None]

NARRATIVE: CASE EVENT DATE: 20210720
